FAERS Safety Report 10263219 (Version 2)
Quarter: 2014Q2

REPORT INFORMATION
  Report Type: Report from Study
  Country: US (occurrence: US)
  Receive Date: 20140626
  Receipt Date: 20140626
  Transmission Date: 20141212
  Serious: Yes (Other)
  Sender: FDA-Public Use
  Company Number: US-MYLANLABS-2014S1009064

PATIENT
  Age: 81 Year
  Sex: Female

DRUGS (26)
  1. CLOZAPINE TABLETS [Suspect]
     Indication: DELUSION
     Route: 048
     Dates: end: 201404
  2. CLOZAPINE TABLETS [Suspect]
     Indication: DEPRESSION
     Route: 048
     Dates: end: 201404
  3. TYLENOL [Concomitant]
  4. ARANESP [Concomitant]
  5. OCULAR LUBRICANT /00445101/ [Concomitant]
  6. BAZA [Concomitant]
  7. CALCIUM [Concomitant]
  8. CARBIDOPA/LEVODOPA [Concomitant]
  9. COREG [Concomitant]
  10. KLONOPIN [Concomitant]
  11. CLOTRIMAZOLE [Concomitant]
     Dosage: CREAM
  12. ROBITUSSIN COUGH DROPS [Concomitant]
  13. CYMBALTA [Concomitant]
  14. FLONASE /00908302/ [Concomitant]
  15. LEVEMIR [Concomitant]
  16. SYNTHROID [Concomitant]
  17. IMODIUM [Concomitant]
  18. MILK OF MAGNESIA [Concomitant]
  19. NOVOLOG [Concomitant]
  20. NYSTATIN [Concomitant]
     Dosage: CREAM
  21. PRILOSEC [Concomitant]
  22. PATANOL [Concomitant]
  23. POTASSIUM CITRATE [Concomitant]
  24. VICKS FORMULA 44 /01928701/ [Concomitant]
  25. VITAMIN B12 [Concomitant]
  26. VITAMIN D [Concomitant]

REACTIONS (1)
  - Granulocytopenia [Not Recovered/Not Resolved]
